FAERS Safety Report 7340785-8 (Version None)
Quarter: 2011Q1

REPORT INFORMATION
  Report Type: 
  Country: None (occurrence: None)
  Receive Date: 20110309
  Receipt Date: 20110228
  Transmission Date: 20110831
  Serious: Yes (Other)
  Sender: FDA-Public Use
  Company Number: GB-TEVA-269752ISR

PATIENT
  Age: 72 Year
  Sex: Male

DRUGS (2)
  1. ERLOTINIB [Suspect]
     Indication: NON-SMALL CELL LUNG CANCER
     Route: 048
     Dates: start: 20101220
  2. TRAMADOL HCL [Suspect]
     Indication: PAIN
     Route: 048
     Dates: start: 20110120, end: 20110124

REACTIONS (3)
  - METASTASES TO CENTRAL NERVOUS SYSTEM [None]
  - MYOCLONUS [None]
  - SKIN REACTION [None]
